FAERS Safety Report 10095574 (Version 2)
Quarter: 2014Q2

REPORT INFORMATION
  Report Type: Spontaneous
  Country: US (occurrence: US)
  Receive Date: 20140422
  Receipt Date: 20140508
  Transmission Date: 20141212
  Serious: Yes (Hospitalization, Other)
  Sender: FDA-Public Use
  Company Number: US-PFIZER INC-2014108596

PATIENT
  Age: 75 Year
  Sex: Male
  Weight: 110.4 kg

DRUGS (8)
  1. INLYTA [Suspect]
     Indication: RENAL CANCER
     Dosage: 5 MG, 2X/DAY
     Route: 048
     Dates: start: 20140124
  2. INLYTA [Suspect]
     Dosage: UNK
     Dates: start: 20140114, end: 20140428
  3. ASPIRIN [Concomitant]
     Dosage: 81 MG, 1X/DAY
     Route: 048
  4. ZIAC [Concomitant]
     Dosage: 1X/DAY (2.5-6.25 MG (1 TIME PER DAY))
     Route: 048
  5. PLAVIX [Concomitant]
     Dosage: 75 MG, 1X/DAY
     Route: 048
  6. OMEGA-3 FATTY ACIDS [Concomitant]
     Dosage: 1 G, 2X/DAY
     Route: 048
  7. NOVOLOG [Concomitant]
     Dosage: 2X/DAY, (100 UNITS INTO THE SKIN 2 TIMES A DAY BEFORE MEALS)
  8. ALTACE [Concomitant]
     Dosage: 5 MG, 1X/DAY
     Route: 048

REACTIONS (9)
  - Abdominal distension [Unknown]
  - Decreased appetite [Unknown]
  - Renal failure chronic [Unknown]
  - Pain in extremity [Unknown]
  - Headache [Unknown]
  - Mucosal inflammation [Unknown]
  - Hypertension [Unknown]
  - Fatigue [Unknown]
  - Coronary artery disease [Unknown]
